FAERS Safety Report 9292333 (Version 2)
Quarter: 2014Q1

REPORT INFORMATION
  Report Type: Spontaneous
  Country: US (occurrence: None)
  Receive Date: 20121212
  Receipt Date: 20130314
  Transmission Date: 20141002
  Serious: No
  Sender: FDA-Public Use
  Company Number: 1210USA008272

PATIENT
  Age: 56 Year
  Sex: Male

DRUGS (3)
  1. VICTRELIS [Suspect]
     Indication: HEPATITIS C
     Route: 048
     Dates: start: 2012
  2. PEGINTRON (PEGINTERFERON ALFA-2B) POWDER FOR INJECTION [Suspect]
     Indication: HEPATITIS C
     Dates: start: 2012
  3. RIBAPAK (RIBAVIRIN) [Suspect]
     Indication: HEPATITIS C
     Dosage: 600  MG MORNING AND 400 MG EVERY EVENING
     Dates: start: 20120712

REACTIONS (8)
  - Influenza like illness [None]
  - Pyrexia [None]
  - Fatigue [None]
  - Rash [None]
  - Pruritus generalised [None]
  - White blood cell count decreased [None]
  - Anaemia [None]
  - Red blood cell count decreased [None]
